FAERS Safety Report 5603868-6 (Version None)
Quarter: 2008Q1

REPORT INFORMATION
  Report Type: 
  Country: None (occurrence: None)
  Receive Date: 20080122
  Receipt Date: 20080122
  Transmission Date: 20080703
  Serious: No
  Sender: FDA-Public Use
  Company Number: None

PATIENT
  Age: 57 Year
  Sex: Male
  Weight: 90.7194 kg

DRUGS (1)
  1. CREST PRO-HEALTH  .07% CETYLPYRIDINIUM   PROCTOR AND GAMBLE [Suspect]
     Dosage: 4 TEASPOONFULLS  TWICE A DAY
     Dates: start: 20071001, end: 20080120

REACTIONS (1)
  - TOOTH DISCOLOURATION [None]
